FAERS Safety Report 12418616 (Version 2)
Quarter: 2016Q2

REPORT INFORMATION
  Report Type: Spontaneous
  Country: US (occurrence: US)
  Receive Date: 20160531
  Receipt Date: 20160601
  Transmission Date: 20160815
  Serious: No
  Sender: FDA-Public Use
  Company Number: US-009507513-1605USA009148

PATIENT
  Sex: Female
  Weight: 72.56 kg

DRUGS (2)
  1. NEXPLANON [Suspect]
     Active Substance: ETONOGESTREL
     Dosage: 1 DF, UNK, 1 STANDARD PACKAGE PREFLAPP OF 1, 68 MG/ 1 ROD EVERY 3 YEARS
     Route: 059
     Dates: start: 201605
  2. NEXPLANON [Suspect]
     Active Substance: ETONOGESTREL
     Dosage: 1 DF, UNK, 1 STANDARD PACKAGE PREFLAPP OF 1, 68 MG/ 1 ROD EVERY 3 YEARS
     Route: 059
     Dates: start: 20160516, end: 201605

REACTIONS (3)
  - Device difficult to use [Recovered/Resolved]
  - Product quality issue [Unknown]
  - No adverse event [Unknown]

NARRATIVE: CASE EVENT DATE: 20160516
